FAERS Safety Report 6882558-6 (Version None)
Quarter: 2010Q3

REPORT INFORMATION
  Report Type: 
  Country: None (occurrence: None)
  Receive Date: 20100729
  Receipt Date: 20100720
  Transmission Date: 20110219
  Serious: Yes (Other)
  Sender: FDA-Public Use
  Company Number: US-ROCHE-701260

PATIENT
  Sex: Female
  Weight: 133.3 kg

DRUGS (30)
  1. ACTEMRA [Suspect]
     Indication: RHEUMATOID ARTHRITIS
     Dosage: FORM: INFUSION; EXPIRY DATE: 2012 (OF BATCH B0012B01), TOTAL MONTHLY DOSE: 540 MG,
     Route: 042
     Dates: start: 20100420, end: 20100420
  2. TORADOL [Suspect]
     Indication: RHEUMATOID ARTHRITIS
     Route: 065
     Dates: start: 20100420
  3. PHENERGAN [Suspect]
     Dosage: OTHER INDICATION NAUSEA
     Route: 065
     Dates: start: 20100420
  4. DEPO-MEDROL [Suspect]
     Indication: FIBROMYALGIA
     Route: 065
     Dates: start: 20100420
  5. OXYCODONE [Concomitant]
     Indication: PAIN
  6. ROXICODONE [Concomitant]
     Indication: PAIN
     Dosage: EVERY 6-8 HOURS AS NECESSARY
  7. ZANAFLEX [Concomitant]
     Dosage: EVERY 6-8 HRS, NO MORE THAN 3 DOSES IN A DAY
     Route: 048
  8. CYMBALTA [Concomitant]
     Indication: DEPRESSION
     Dosage: OTHER INDICATION: PAIN, AT NIGHT
     Route: 048
  9. XANAX [Concomitant]
     Indication: ANXIETY
     Dosage: AS NECESSARY
     Route: 048
  10. LEXAPRO [Concomitant]
     Indication: DEPRESSION
  11. PROCARDIA XL [Concomitant]
     Indication: HYPERTENSION
     Dosage: STRENGTH: 60 MG
     Route: 048
  12. PROCARDIA XL [Concomitant]
     Dosage: STRENGTH: 90 MG, 2 TABLETS IN AM AND 2 TABLETS AT NIGHT
     Route: 048
  13. LISINOPRIL VS HCTZ [Concomitant]
     Indication: HYPERTENSION
     Dosage: STRENGTH: 20/25 MG
  14. MIRAPEX [Concomitant]
     Dosage: EVERY NIGHT
     Route: 048
  15. TOPAMAX [Concomitant]
     Indication: MIGRAINE
     Route: 048
  16. MAXALT [Concomitant]
     Indication: MIGRAINE
     Dosage: FREQUENCY: AS NEEDED, MAY REPEAT IN 2 HRS, NO MORE THAN 3 DOSES PER DAY
     Route: 048
  17. FROVA [Concomitant]
     Indication: MIGRAINE
     Dosage: FREQUENCY: AS NEEDED
  18. NEXIUM [Concomitant]
     Indication: GASTRIC DISORDER
     Dosage: AS NECESSARY
     Route: 048
  19. YASMIN [Concomitant]
     Dosage: AS DIRECTED
     Route: 048
  20. INDERAL [Concomitant]
     Indication: BLOOD PRESSURE
     Dosage: TAKE 1 TO 2 TABLET EVERY NIGHT
     Route: 048
  21. CELEXA [Concomitant]
     Route: 048
  22. PROMETHAZINE HCL [Concomitant]
     Indication: NAUSEA
     Dosage: AS NECESSARY
  23. OXYCONTIN [Concomitant]
     Route: 048
  24. LISINOPRIL AND HYDROCHLOROTHIAZIDE [Concomitant]
     Indication: BLOOD PRESSURE
     Dosage: IN THE MORNING AND FLUID PILL
     Route: 048
  25. SYMBYAX [Concomitant]
     Dosage: IN THE EVENING
     Route: 048
  26. TEMOVATE [Concomitant]
     Indication: RASH
     Dosage: APPLY AS THIN FILM
     Route: 061
  27. TEMOVATE [Concomitant]
     Dosage: APPLY AS THIN FILM
     Route: 061
  28. NYSTATIN [Concomitant]
     Dosage: STRENGTH: 100000U/1GM
     Route: 061
  29. PREDNISONE [Concomitant]
     Indication: JOINT SWELLING
     Dosage: STRENGTH: 10MG, 3 TABLETS FOR 3 DAYS, 2 TABLETS DAILY FOR 2 DAYS, I TABLET DAILY FOR 2 DAYS
     Route: 048
  30. PREDNISONE [Concomitant]
     Dosage: STRENGTH: 5 MG, 1 OR 2 TABLETS AS NEEDED, OTHER INDICATION: RHEUMATOID ARTHRITS
     Route: 048

REACTIONS (11)
  - BIPOLAR DISORDER [None]
  - ERYTHEMA [None]
  - FIBROMYALGIA [None]
  - FUNGAL INFECTION [None]
  - HEADACHE [None]
  - JOINT EFFUSION [None]
  - NAUSEA [None]
  - PAIN [None]
  - PERIPHERAL VASCULAR DISORDER [None]
  - PRURITUS [None]
  - VOMITING [None]
